FAERS Safety Report 5718598-X (Version None)
Quarter: 2008Q2

REPORT INFORMATION
  Report Type: 
  Country: None (occurrence: None)
  Receive Date: 20080425
  Receipt Date: 20080422
  Transmission Date: 20081010
  Serious: Yes (Hospitalization)
  Sender: FDA-Public Use
  Company Number: US-GENENTECH-255416

PATIENT
  Sex: Male
  Weight: 68.027 kg

DRUGS (3)
  1. BLINDED ERLOTINIB [Suspect]
     Indication: NON-SMALL CELL LUNG CANCER
     Dosage: 150 UNK, QD
     Route: 048
     Dates: start: 20070806
  2. BLINDED PLACEBO [Suspect]
     Indication: NON-SMALL CELL LUNG CANCER
     Dosage: 150 UNK, QD
     Route: 048
     Dates: start: 20070806
  3. BEVACIZUMAB [Suspect]
     Indication: NON-SMALL CELL LUNG CANCER
     Dosage: 15 MG/KG, Q3W
     Route: 042
     Dates: start: 20070503

REACTIONS (1)
  - OESOPHAGITIS [None]
